FAERS Safety Report 8426690-4 (Version None)
Quarter: 2012Q2

REPORT INFORMATION
  Report Type: 
  Country: None (occurrence: None)
  Receive Date: 20120611
  Receipt Date: 20120606
  Transmission Date: 20120825
  Serious: Yes (Death, Hospitalization, Other)
  Sender: FDA-Public Use
  Company Number: US-PFIZER INC-2012049445

PATIENT
  Sex: Female

DRUGS (4)
  1. CELEBREX [Suspect]
     Dosage: 200 MG, UNK
     Dates: start: 20020513, end: 20020823
  2. VIOXX [Suspect]
     Dosage: UNK
  3. CELEBREX [Suspect]
     Indication: PAIN
     Dosage: UNK
     Dates: start: 19991223
  4. CELEBREX [Suspect]
     Dosage: 200 MG, UNK
     Dates: start: 19990726, end: 20000520

REACTIONS (8)
  - ATRIAL FIBRILLATION [None]
  - CARDIAC FAILURE CONGESTIVE [None]
  - ISCHAEMIC CARDIOMYOPATHY [None]
  - SUPRAVENTRICULAR TACHYCARDIA [None]
  - CARDIAC ANEURYSM [None]
  - MYOCARDIAL INFARCTION [None]
  - ABDOMINAL PAIN [None]
  - HYPERTENSION [None]
